FAERS Safety Report 13006219 (Version 1)
Quarter: 2016Q4

REPORT INFORMATION
  Report Type: Spontaneous
  Country: US (occurrence: US)
  Receive Date: 20161206
  Receipt Date: 20161206
  Transmission Date: 20170207
  Serious: Yes (Other)
  Sender: FDA-Public Use
  Company Number: None

PATIENT
  Age: 65 Year
  Sex: Female

DRUGS (5)
  1. TRIAMCERENE/HCTZ [Concomitant]
  2. AVONEX [Concomitant]
     Active Substance: INTERFERON BETA-1A
  3. AMPYRA [Suspect]
     Active Substance: DALFAMPRIDINE
     Indication: MULTIPLE SCLEROSIS
     Route: 048
     Dates: start: 201507
  4. METFORMIN [Concomitant]
     Active Substance: METFORMIN HYDROCHLORIDE
  5. BACLOFEN. [Concomitant]
     Active Substance: BACLOFEN

REACTIONS (7)
  - Urine analysis abnormal [None]
  - Glucose urine present [None]
  - Escherichia urinary tract infection [None]
  - Urinary tract infection fungal [None]
  - Bacterial infection [None]
  - Culture urine positive [None]
  - Streptococcal urinary tract infection [None]

NARRATIVE: CASE EVENT DATE: 20161103
